FAERS Safety Report 5552366-7 (Version None)
Quarter: 2007Q4

REPORT INFORMATION
  Report Type: 
  Country: None (occurrence: None)
  Receive Date: 20071212
  Receipt Date: 20071205
  Transmission Date: 20080405
  Serious: Yes (Hospitalization)
  Sender: FDA-Public Use
  Company Number: US-MERCK-0712USA01614

PATIENT
  Sex: Female

DRUGS (2)
  1. ZOCOR [Suspect]
     Route: 048
  2. ZETIA [Suspect]
     Route: 048

REACTIONS (4)
  - ADVERSE DRUG REACTION [None]
  - HYPERTENSION [None]
  - LOSS OF CONSCIOUSNESS [None]
  - UTERINE DISORDER [None]
